FAERS Safety Report 17901988 (Version 1)
Quarter: 2020Q2

REPORT INFORMATION
  Report Type: Spontaneous
  Country: JP (occurrence: JP)
  Receive Date: 20200616
  Receipt Date: 20200616
  Transmission Date: 20200714
  Serious: Yes (Other)
  Sender: FDA-Public Use
  Company Number: JP-ALLERGAN-2023240US

PATIENT
  Sex: Female

DRUGS (1)
  1. BOTOX [Suspect]
     Active Substance: ONABOTULINUMTOXINA
     Indication: HYPERTONIC BLADDER
     Dosage: 100 UNITS, SINGLE
     Route: 030

REACTIONS (5)
  - Injection site pain [Recovered/Resolved]
  - Dysuria [Unknown]
  - Urine analysis abnormal [Unknown]
  - Haemorrhage [Unknown]
  - Cystitis [Unknown]
